FAERS Safety Report 24265736 (Version 1)
Quarter: 2024Q3

REPORT INFORMATION
  Report Type: Spontaneous
  Country: BG (occurrence: BG)
  Receive Date: 20240830
  Receipt Date: 20240830
  Transmission Date: 20241017
  Serious: Yes (Hospitalization, Other)
  Sender: BRISTOL MYERS SQUIBB
  Company Number: BG-BRISTOL-MYERS SQUIBB COMPANY-2024-136238

PATIENT
  Age: 54 Year
  Sex: Male

DRUGS (2)
  1. NIVOLUMAB [Suspect]
     Active Substance: NIVOLUMAB
     Indication: Non-small cell lung cancer
  2. IPILIMUMAB [Suspect]
     Active Substance: IPILIMUMAB
     Indication: Non-small cell lung cancer

REACTIONS (3)
  - Immune-mediated lung disease [Recovered/Resolved]
  - Immune-mediated hepatitis [Recovered/Resolved]
  - Skin toxicity [Recovered/Resolved]
